FAERS Safety Report 9507251 (Version 1)
Quarter: 2013Q1

REPORT INFORMATION
  Report Type: Spontaneous
  Country: US (occurrence: None)
  Receive Date: 20130305
  Receipt Date: 20130305
  Transmission Date: 20140127
  Serious: Yes (Other)
  Sender: FDA-Public Use
  Company Number: 163-21880-12082594

PATIENT
  Sex: Male

DRUGS (12)
  1. REVLIMID (LENALIDOMIDE) (25 MILLIGRAM, CAPSULES) [Suspect]
     Indication: PLASMA CELL MYELOMA
     Dosage: 25 MG, 21 IN 21 D, PO
     Route: 048
     Dates: start: 201203
  2. ALLOPURINOL (ALLOPURINOL) (UNKNOWN) [Concomitant]
  3. CALCIUM (CALCIUM) (UNKNOWN) [Concomitant]
  4. CLONIDINE (CLONIDINE) (UNKNOWN) [Concomitant]
  5. CRESTOR (ROSUVASTATIN) (UNKNOWN) [Concomitant]
  6. CYCLOBENZAPRINE (CYCLOBENZAPRINE) (UNKNOWN) [Concomitant]
  7. MULTIVITAMINS (MULTIVITAMINS) (UNKNOWN) [Concomitant]
  8. PANTOPRAZOLE [Concomitant]
  9. RENVELA (SEVELAMER CARBONATE) (UNKNOWN) [Concomitant]
  10. TRAMADOL (TRAMADOL) (UNKNOWN) [Concomitant]
  11. VITAMIN B12 (CYANOCOBALAMIN) (UNKNOWN) [Concomitant]
  12. WARFARIN (WARFARIN) (UNKNOWN) [Concomitant]

REACTIONS (1)
  - Drug dose omission [None]
